FAERS Safety Report 7732465-1 (Version None)
Quarter: 2011Q3

REPORT INFORMATION
  Report Type: 
  Country: None (occurrence: None)
  Receive Date: 20110906
  Receipt Date: 20110823
  Transmission Date: 20111222
  Serious: Yes (Hospitalization)
  Sender: FDA-Public Use
  Company Number: BR-ELI_LILLY_AND_COMPANY-BR201108007351

PATIENT
  Sex: Female
  Weight: 69 kg

DRUGS (2)
  1. CYMBALTA [Suspect]
     Indication: DEPRESSION
     Dosage: 60 MG, QD
     Route: 048
     Dates: end: 20101201
  2. ALPRAZOLAM [Concomitant]
     Indication: PANIC DISORDER
     Dosage: UNK, UNKNOWN
     Route: 065

REACTIONS (6)
  - MUSCULAR WEAKNESS [None]
  - MYASTHENIA GRAVIS [None]
  - APHASIA [None]
  - EYELID PTOSIS [None]
  - ABASIA [None]
  - APHAGIA [None]
